FAERS Safety Report 21464184 (Version 1)
Quarter: 2022Q4

REPORT INFORMATION
  Report Type: Spontaneous
  Country: BR (occurrence: BR)
  Receive Date: 20221017
  Receipt Date: 20221017
  Transmission Date: 20230112
  Serious: Yes (Other)
  Sender: FDA-Public Use
  Company Number: BR-NOVARTISPH-NVSC2022BR232467

PATIENT
  Sex: Female

DRUGS (1)
  1. BRINZOLAMIDE\TIMOLOL MALEATE [Suspect]
     Active Substance: BRINZOLAMIDE\TIMOLOL MALEATE
     Indication: Product used for unknown indication
     Dosage: 5 ML (PRODUCT MANUFACTURE DATE: MAY 2022)
     Route: 065

REACTIONS (5)
  - Blindness [Unknown]
  - Facial paralysis [Unknown]
  - Cataract [Unknown]
  - Eye disorder [Unknown]
  - Product container seal issue [Unknown]
